FAERS Safety Report 8578072-2 (Version None)
Quarter: 2012Q3

REPORT INFORMATION
  Report Type: 
  Country: None (occurrence: None)
  Receive Date: 20120808
  Receipt Date: 20120803
  Transmission Date: 20120928
  Serious: Yes (Death, Hospitalization, Other)
  Sender: FDA-Public Use
  Company Number: PHHY2012BR067873

PATIENT
  Sex: Male
  Weight: 80 kg

DRUGS (5)
  1. AMLODIPINE [Concomitant]
     Indication: HYPERTENSION
     Dosage: 5 MG, ONE TABLET DAILY
  2. METFORMIN HYDROCHLORIDE [Concomitant]
     Indication: DIABETES MELLITUS
     Dosage: 850 MG, ONE TABLET TWICE DAILY
  3. EXELON [Suspect]
     Indication: NEURODEGENERATIVE DISORDER
     Dosage: 4.6 MG (9 MG/5 CM2), ONE ADHESIVE EACH 24 HOURS
     Route: 062
     Dates: start: 20120201
  4. CHLORTHALIDONE [Concomitant]
     Indication: HYPERTENSION
     Dosage: 12.5 MG, ONE TABLET TWICE DAILY
  5. LOSARTAN POTASSIUM [Concomitant]
     Indication: HYPERTENSION
     Dosage: 50 MG, ONE TABLET TWICE DAILY

REACTIONS (3)
  - HYPOTHERMIA [None]
  - PULMONARY EMBOLISM [None]
  - HYPERHIDROSIS [None]
